FAERS Safety Report 7398238-7 (Version None)
Quarter: 2011Q2

REPORT INFORMATION
  Report Type: 
  Country: None (occurrence: None)
  Receive Date: 20110406
  Receipt Date: 20110325
  Transmission Date: 20111010
  Serious: Yes (Other)
  Sender: FDA-Public Use
  Company Number: US-WATSON-2011-04022

PATIENT
  Sex: Female

DRUGS (3)
  1. ALENDRONATE SODIUM [Suspect]
     Indication: OSTEOPOROSIS
     Dosage: UNK
     Route: 048
     Dates: start: 19980101, end: 20081101
  2. BONIVA [Suspect]
     Indication: OSTEOPOROSIS
     Dosage: UNK
     Route: 048
     Dates: start: 20081101, end: 20090201
  3. FOSAMAX [Suspect]
     Indication: OSTEOPOROSIS
     Dosage: UNK
     Route: 048
     Dates: start: 19980101, end: 20081101

REACTIONS (6)
  - FEMUR FRACTURE [None]
  - OSTEONECROSIS [None]
  - BONE DISORDER [None]
  - STRESS FRACTURE [None]
  - MULTIPLE FRACTURES [None]
  - LOW TURNOVER OSTEOPATHY [None]
